FAERS Safety Report 7072075-5 (Version None)
Quarter: 2010Q4

REPORT INFORMATION
  Report Type: 
  Country: None (occurrence: None)
  Receive Date: 20101029
  Receipt Date: 20100111
  Transmission Date: 20110411
  Serious: No
  Sender: FDA-Public Use
  Company Number: A0832269A

PATIENT
  Age: 82 Year
  Sex: Female

DRUGS (5)
  1. ADVAIR DISKUS 100/50 [Suspect]
     Indication: ASTHMA
     Dosage: 1PUFF PER DAY
     Route: 055
     Dates: start: 20040801
  2. PROAIR HFA [Concomitant]
     Indication: ASTHMA
     Dosage: 2PUFF AS REQUIRED
     Route: 055
     Dates: start: 20010701
  3. LISINOPRIL [Concomitant]
     Indication: BLOOD PRESSURE
     Dosage: 10MG PER DAY
     Route: 048
     Dates: start: 20080601
  4. LYRICA [Concomitant]
     Dosage: 25MG VARIABLE DOSE
     Route: 048
     Dates: start: 20080601
  5. FORTICAL [Concomitant]
     Indication: OSTEOPOROSIS
     Dosage: 1SPR PER DAY
     Route: 045
     Dates: start: 20060701

REACTIONS (2)
  - DRUG INEFFECTIVE [None]
  - PRODUCT QUALITY ISSUE [None]
